FAERS Safety Report 23552076 (Version 5)
Quarter: 2024Q3

REPORT INFORMATION
  Report Type: Report from Study
  Country: US (occurrence: US)
  Receive Date: 20240222
  Receipt Date: 20240801
  Transmission Date: 20241017
  Serious: Yes (Hospitalization, Other)
  Sender: TAKEDA
  Company Number: US-TAKEDA-2024TUS016236

PATIENT
  Age: 42 Year
  Sex: Female
  Weight: 59 kg

DRUGS (5)
  1. LANADELUMAB [Suspect]
     Active Substance: LANADELUMAB
     Indication: Hereditary angioedema
     Dosage: UNK UNK, Q2WEEKS
     Route: 050
     Dates: start: 20240122
  2. LANADELUMAB [Suspect]
     Active Substance: LANADELUMAB
     Indication: Hereditary angioedema with C1 esterase inhibitor deficiency
     Dosage: 300 MILLIGRAM, Q2WEEKS
     Route: 058
     Dates: start: 20240131
  3. LANADELUMAB [Suspect]
     Active Substance: LANADELUMAB
     Indication: Immune system disorder
     Dosage: 300 MILLIGRAM, Q2WEEKS
     Route: 065
     Dates: start: 20240201
  4. LANADELUMAB [Suspect]
     Active Substance: LANADELUMAB
     Dosage: UNK UNK, Q2WEEKS
     Route: 058
  5. LANADELUMAB [Suspect]
     Active Substance: LANADELUMAB
     Dosage: UNK UNK, Q2WEEKS
     Route: 050
     Dates: end: 20240422

REACTIONS (13)
  - Suicidal ideation [Unknown]
  - Seizure [Unknown]
  - Bradycardia [Unknown]
  - Blood sodium decreased [Unknown]
  - Cardiac disorder [Unknown]
  - Hereditary angioedema [Recovering/Resolving]
  - Vomiting [Unknown]
  - Eye swelling [Recovered/Resolved]
  - Influenza [Unknown]
  - Nasopharyngitis [Unknown]
  - Swollen tongue [Recovered/Resolved]
  - Musculoskeletal chest pain [Unknown]
  - Swelling [Unknown]

NARRATIVE: CASE EVENT DATE: 20240216
